FAERS Safety Report 5481430-6 (Version None)
Quarter: 2007Q4

REPORT INFORMATION
  Report Type: 
  Country: None (occurrence: None)
  Receive Date: 20071010
  Receipt Date: 20071003
  Transmission Date: 20080405
  Serious: Yes (Hospitalization)
  Sender: FDA-Public Use
  Company Number: B0488317A

PATIENT
  Age: 68 Year
  Sex: Female
  Weight: 82 kg

DRUGS (6)
  1. AVANDIA [Suspect]
     Indication: DIABETES MELLITUS INADEQUATE CONTROL
     Dosage: 4MG PER DAY
     Route: 048
     Dates: start: 20050829, end: 20050914
  2. LIPITOR ATORVASTATINE [Concomitant]
     Dosage: 10MG PER DAY
     Route: 065
  3. INDAPAMIDE [Concomitant]
     Dosage: 2.5MG PER DAY
     Route: 065
  4. BISOPROLOL FUMARATE [Concomitant]
     Dosage: 5MG PER DAY
     Route: 065
  5. GLUCOPHAGE METFORMINE [Concomitant]
     Indication: DIABETES MELLITUS
     Dosage: 850MG TWICE PER DAY
     Route: 065
  6. DICLOFENAC SODIUM [Concomitant]
     Dosage: 75MG PER DAY
     Route: 065
     Dates: start: 20050829, end: 20050914

REACTIONS (8)
  - ANAEMIA [None]
  - CARDIAC FAILURE [None]
  - CHEST PAIN [None]
  - DYSPNOEA EXERTIONAL [None]
  - LIVER DISORDER [None]
  - OEDEMA PERIPHERAL [None]
  - PALPITATIONS [None]
  - PULMONARY OEDEMA [None]
